FAERS Safety Report 16934776 (Version 1)
Quarter: 2019Q4

REPORT INFORMATION
  Report Type: Spontaneous
  Country: GB (occurrence: GB)
  Receive Date: 20191018
  Receipt Date: 20191018
  Transmission Date: 20200122
  Serious: Yes (Hospitalization)
  Sender: FDA-Public Use
  Company Number: GB-009507513-1910GBR009689

PATIENT
  Age: 83 Year
  Sex: Male

DRUGS (1)
  1. SINEMET PLUS [Suspect]
     Active Substance: CARBIDOPA\LEVODOPA
     Dosage: 125 MG, THREE TIMES A DAY
     Route: 048

REACTIONS (4)
  - Adverse drug reaction [Unknown]
  - Product availability issue [Unknown]
  - Adverse event [Unknown]
  - Movement disorder [Unknown]

NARRATIVE: CASE EVENT DATE: 2019
